FAERS Safety Report 23339965 (Version 6)
Quarter: 2024Q1

REPORT INFORMATION
  Report Type: Report from Study
  Country: PL (occurrence: PL)
  Receive Date: 20231226
  Receipt Date: 20240308
  Transmission Date: 20240409
  Serious: Yes (Hospitalization)
  Sender: FDA-Public Use
  Company Number: PL-009507513-2312POL003338

PATIENT
  Age: 72 Year
  Sex: Male
  Weight: 57 kg

DRUGS (31)
  1. CARBOPLATIN [Suspect]
     Active Substance: CARBOPLATIN
     Indication: Non-small cell lung cancer metastatic
     Dosage: 6 AUC
     Route: 042
     Dates: start: 20230801, end: 20230919
  2. PACLITAXEL [Suspect]
     Active Substance: PACLITAXEL
     Indication: Non-small cell lung cancer metastatic
     Dosage: 200 MG/M2, ONCE EVERY 3 WEEKS
     Route: 042
     Dates: start: 20230801, end: 20230919
  3. PACLITAXEL [Suspect]
     Active Substance: PACLITAXEL
     Dosage: 600 MG/M2
     Route: 042
  4. PEMBROLIZUMAB [Suspect]
     Active Substance: PEMBROLIZUMAB
     Indication: Non-small cell lung cancer metastatic
     Dosage: 200 MG, EVERY 3 WEEKS
     Route: 042
     Dates: start: 20230801, end: 20231114
  5. ACASUNLIMAB [Suspect]
     Active Substance: ACASUNLIMAB
     Indication: Non-small cell lung cancer metastatic
     Dosage: ONCE EVERY 3 WEEKS
     Route: 042
     Dates: start: 20230801, end: 20231114
  6. AMOXICILLIN\CLAVULANIC ACID [Suspect]
     Active Substance: AMOXICILLIN\CLAVULANIC ACID
     Indication: Cholecystitis
     Dosage: 1 DF (TABLET), 1X/DAY
     Dates: start: 20231122, end: 20231122
  7. AMOXICILLIN\CLAVULANIC ACID [Suspect]
     Active Substance: AMOXICILLIN\CLAVULANIC ACID
     Dosage: 1 DF (TABLET), 2X/DAY
     Route: 048
     Dates: start: 20231123, end: 20231124
  8. LACIDIPINE [Concomitant]
     Active Substance: LACIDIPINE
     Dosage: UNK
     Dates: start: 20230731, end: 20231125
  9. DROTAVERINE HYDROCHLORIDE [Concomitant]
     Active Substance: DROTAVERINE HYDROCHLORIDE
     Dosage: UNK
     Dates: start: 20231122, end: 20231123
  10. ELECTROLYTES NOS [Concomitant]
     Active Substance: ELECTROLYTES NOS
     Dosage: UNK
     Dates: start: 202401, end: 202401
  11. LEVOFLOXACIN [Concomitant]
     Active Substance: LEVOFLOXACIN
     Dosage: UNK
     Dates: start: 20240104, end: 202401
  12. SPIRONOLACTONE [Concomitant]
     Active Substance: SPIRONOLACTONE
     Dosage: UNK
     Dates: start: 20231214
  13. BIOPRAZOL [Concomitant]
     Dosage: UNK
     Dates: start: 20231126, end: 20231128
  14. AMLODIPINE BESYLATE [Concomitant]
     Active Substance: AMLODIPINE BESYLATE
     Dosage: UNK
  15. NEOPARIN NX [Concomitant]
     Dosage: UNK
     Dates: start: 20231126, end: 20240105
  16. ACETAMINOPHEN [Concomitant]
     Active Substance: ACETAMINOPHEN
     Dosage: UNK
     Dates: start: 20240103, end: 20240103
  17. ASPIRIN [Concomitant]
     Active Substance: ASPIRIN
     Dosage: UNK
     Dates: start: 2020
  18. ATROVENT [Concomitant]
     Active Substance: IPRATROPIUM BROMIDE
     Dosage: UNK
     Dates: start: 20240118
  19. COMBOTEROL [Concomitant]
     Dosage: UNK
     Dates: start: 20230720, end: 20231125
  20. ATRODIL [Concomitant]
     Dosage: UNK
     Dates: start: 20230620, end: 20240105
  21. ALLOPURINOL [Concomitant]
     Active Substance: ALLOPURINOL
     Dosage: UNK
     Dates: start: 202401
  22. FUROSEMIDE [Concomitant]
     Active Substance: FUROSEMIDE
     Dosage: UNK
     Dates: start: 20231214, end: 20240104
  23. MAGNE B6 [Concomitant]
     Active Substance: MAGNESIUM\PYRIDOXINE
     Dosage: UNK
     Dates: start: 20230912, end: 20231125
  24. ENOXAPARIN SODIUM [Concomitant]
     Active Substance: ENOXAPARIN SODIUM
     Dosage: UNK
     Dates: start: 202401, end: 202401
  25. PREDNISONE [Concomitant]
     Active Substance: PREDNISONE
     Dosage: UNK
     Dates: start: 20231031, end: 20231125
  26. CONTROLOC [Concomitant]
     Active Substance: PANTOPRAZOLE SODIUM
     Dosage: UNK
     Dates: start: 20231229
  27. METHIMAZOLE [Concomitant]
     Active Substance: METHIMAZOLE
     Dosage: UNK
     Dates: start: 20231025, end: 20231212
  28. BIBLOC [BISOPROLOL FUMARATE] [Concomitant]
     Dosage: UNK
     Dates: start: 20231126
  29. AMOXICILLIN\CLAVULANATE POTASSIUM [Concomitant]
     Active Substance: AMOXICILLIN\CLAVULANATE POTASSIUM
     Dosage: UNK
     Dates: start: 202401, end: 202401
  30. AMLODIPINE BESYLATE [Concomitant]
     Active Substance: AMLODIPINE BESYLATE
     Dosage: UNK
     Dates: start: 20231126, end: 20240105
  31. SORBIFER DURULES [ASCORBIC ACID;FERROUS SULFATE] [Concomitant]
     Dosage: UNK
     Dates: start: 20240118

REACTIONS (1)
  - Haemophagocytic lymphohistiocytosis [Recovering/Resolving]

NARRATIVE: CASE EVENT DATE: 20231122
